FAERS Safety Report 19231103 (Version 1)
Quarter: 2021Q2

REPORT INFORMATION
  Report Type: Spontaneous
  Country: US (occurrence: US)
  Receive Date: 20210507
  Receipt Date: 20210507
  Transmission Date: 20210717
  Serious: Yes (Other)
  Sender: FDA-Public Use
  Company Number: US-ELI_LILLY_AND_COMPANY-US202105000279

PATIENT
  Sex: Female

DRUGS (1)
  1. VERZENIO [Suspect]
     Active Substance: ABEMACICLIB
     Indication: BRAIN CANCER METASTATIC
     Dosage: UNK UNK, UNKNOWN
     Route: 065

REACTIONS (2)
  - Liver function test increased [Unknown]
  - Off label use [Unknown]
